FAERS Safety Report 4908295-2 (Version None)
Quarter: 2006Q1

REPORT INFORMATION
  Report Type: 
  Country: None (occurrence: None)
  Receive Date: 20060210
  Receipt Date: 20060130
  Transmission Date: 20060701
  Serious: Yes (Hospitalization)
  Sender: FDA-Public Use
  Company Number: FR-JNJFOC-20060201874

PATIENT
  Age: 51 Year
  Sex: Male

DRUGS (6)
  1. CONTRAMAL [Suspect]
     Indication: DRUG USE FOR UNKNOWN INDICATION
     Route: 048
  2. TOPALGIC [Suspect]
     Indication: DRUG USE FOR UNKNOWN INDICATION
     Route: 048
  3. DOXYCYCLINE [Suspect]
     Indication: DRUG USE FOR UNKNOWN INDICATION
     Route: 048
  4. FRACTAL [Concomitant]
     Indication: HYPERCHOLESTEROLAEMIA
     Dosage: 5-7 YEARS DURATION.
     Route: 065
  5. PRIMPERAN INJ [Concomitant]
     Route: 065
  6. CLAMOXYL [Concomitant]
     Route: 065

REACTIONS (3)
  - BENIGN INTRACRANIAL HYPERTENSION [None]
  - PAPILLOEDEMA [None]
  - RETINAL HAEMORRHAGE [None]
